FAERS Safety Report 8024895-8 (Version None)
Quarter: 2012Q1

REPORT INFORMATION
  Report Type: 
  Country: None (occurrence: None)
  Receive Date: 20120105
  Receipt Date: 20111228
  Transmission Date: 20120608
  Serious: Yes (Other)
  Sender: FDA-Public Use
  Company Number: PHHY2011JP109084

PATIENT

DRUGS (1)
  1. NEORAL [Suspect]
     Indication: APLASIA PURE RED CELL
     Dosage: UNK UKN, UNK
     Route: 048
     Dates: end: 20111201

REACTIONS (1)
  - GRANULOMATOUS LIVER DISEASE [None]
